FAERS Safety Report 6280316-7 (Version None)
Quarter: 2009Q3

REPORT INFORMATION
  Report Type: 
  Country: None (occurrence: None)
  Receive Date: 20090724
  Receipt Date: 20070502
  Transmission Date: 20100115
  Serious: Yes (Hospitalization)
  Sender: FDA-Public Use
  Company Number: US-ASTRAZENECA-2006UW11596

PATIENT
  Sex: Male
  Weight: 112.5 kg

DRUGS (17)
  1. SEROQUEL [Suspect]
     Dosage: 25MG-200MG
     Route: 048
     Dates: start: 20040415
  2. ZYPREXA [Suspect]
     Route: 065
     Dates: start: 20050101
  3. ABILIFY [Concomitant]
  4. RISPERDAL [Concomitant]
  5. ALBUTEROL [Concomitant]
  6. NEXIUM [Concomitant]
  7. LAMICTAL [Concomitant]
  8. WELLBUTRIN [Concomitant]
  9. AVANDIA [Concomitant]
  10. LOVASTATIN [Concomitant]
  11. VIAGRA [Concomitant]
  12. DEPAKOTE [Concomitant]
  13. GLIPIZIDE [Concomitant]
  14. LEXAPRO [Concomitant]
  15. LUNESTA [Concomitant]
  16. TRAZODONE [Concomitant]
  17. ADDERALL 10 [Concomitant]

REACTIONS (2)
  - BIPOLAR I DISORDER [None]
  - DIABETES MELLITUS [None]
